FAERS Safety Report 16746669 (Version 1)
Quarter: 2019Q3

REPORT INFORMATION
  Report Type: Spontaneous
  Country: US (occurrence: US)
  Receive Date: 20190827
  Receipt Date: 20190827
  Transmission Date: 20191005
  Serious: No
  Sender: FDA-Public Use
  Company Number: US-ELI_LILLY_AND_COMPANY-US201907016615

PATIENT
  Sex: Female

DRUGS (1)
  1. EMGALITY [Suspect]
     Active Substance: GALCANEZUMAB-GNLM
     Indication: MIGRAINE PROPHYLAXIS
     Dosage: 240 MG, UNKNOWN
     Route: 065
     Dates: start: 20190720

REACTIONS (4)
  - Injection site reaction [Unknown]
  - Skin irritation [Unknown]
  - Chapped lips [Unknown]
  - Herpes simplex [Unknown]

NARRATIVE: CASE EVENT DATE: 20190720
